FAERS Safety Report 5425337-9 (Version None)
Quarter: 2007Q3

REPORT INFORMATION
  Report Type: 
  Country: None (occurrence: None)
  Receive Date: 20070824
  Receipt Date: 20070813
  Transmission Date: 20080115
  Serious: Yes (Other)
  Sender: FDA-Public Use
  Company Number: US-JNJFOC-20070804164

PATIENT
  Sex: Male
  Weight: 88 kg

DRUGS (20)
  1. REMICADE [Suspect]
     Dosage: UNKNOWN TOTAL NUMBER OF INFUSIONS
  2. REMICADE [Suspect]
     Dosage: UNKNOWN TOTAL NUMBER OF INFUSIONS
  3. REMICADE [Suspect]
  4. REMICADE [Suspect]
  5. REMICADE [Suspect]
  6. REMICADE [Suspect]
  7. REMICADE [Suspect]
     Dosage: 4 INFUSIONS
  8. REMICADE [Suspect]
  9. REMICADE [Suspect]
  10. REMICADE [Suspect]
  11. REMICADE [Suspect]
  12. REMICADE [Suspect]
     Dosage: 3 INFUSIONS
  13. REMICADE [Suspect]
  14. REMICADE [Suspect]
  15. REMICADE [Suspect]
  16. REMICADE [Suspect]
  17. REMICADE [Suspect]
  18. REMICADE [Suspect]
     Indication: RHEUMATOID ARTHRITIS
     Dosage: 8 INFUSIONS, DOSAGE AND DATES UNKNOWN
  19. BENADRYL [Concomitant]
     Indication: PREMEDICATION
     Route: 048
  20. METHOTREXATE [Concomitant]

REACTIONS (2)
  - LUPUS-LIKE SYNDROME [None]
  - SYNOVITIS [None]
